FAERS Safety Report 7163649-1 (Version None)
Quarter: 2010Q4

REPORT INFORMATION
  Report Type: 
  Country: None (occurrence: None)
  Receive Date: 20101215
  Receipt Date: 20100521
  Transmission Date: 20110411
  Serious: Yes (Other)
  Sender: FDA-Public Use
  Company Number: US-PFIZER INC-2010055601

PATIENT
  Sex: Female
  Weight: 65.76 kg

DRUGS (3)
  1. LYRICA [Suspect]
     Indication: FIBROMYALGIA
     Dosage: 75 MG, 2X/DAY
     Route: 048
     Dates: start: 20080101, end: 20100201
  2. CALCIUM [Concomitant]
     Dosage: UNK
  3. VITAMIN D [Concomitant]
     Dosage: UNK

REACTIONS (5)
  - CYANOPSIA [None]
  - PAIN [None]
  - VISUAL ACUITY REDUCED [None]
  - VITAMIN D DEFICIENCY [None]
  - WEIGHT INCREASED [None]
